FAERS Safety Report 9643187 (Version 1)
Quarter: 2013Q4

REPORT INFORMATION
  Report Type: Spontaneous
  Country: US (occurrence: US)
  Receive Date: 20131024
  Receipt Date: 20131024
  Transmission Date: 20140711
  Serious: No
  Sender: FDA-Public Use
  Company Number: US-GLAXOSMITHKLINE-A0997528A

PATIENT
  Sex: Female

DRUGS (3)
  1. DUAC [Suspect]
     Route: 061
  2. MINOCYCLINE [Concomitant]
  3. SPIRONOLACTONE [Concomitant]

REACTIONS (2)
  - Skin discolouration [Not Recovered/Not Resolved]
  - Pigmentation disorder [Unknown]
